FAERS Safety Report 14747399 (Version 5)
Quarter: 2018Q4

REPORT INFORMATION
  Report Type: Spontaneous
  Country: CA (occurrence: CA)
  Receive Date: 20180411
  Receipt Date: 20181115
  Transmission Date: 20190204
  Serious: Yes (Other)
  Sender: FDA-Public Use
  Company Number: CA-PFIZER INC-2018145702

PATIENT
  Age: 47 Year
  Sex: Female

DRUGS (9)
  1. PREDNISONE. [Concomitant]
     Active Substance: PREDNISONE
     Dosage: 40 MG, ONCE A DAY (TAPERING DOSE)
     Route: 048
     Dates: start: 20180401
  2. INFLECTRA [INFLIXIMAB] [Concomitant]
     Indication: COLITIS ULCERATIVE
     Dosage: 275 MG, CYCLIC (EVERY 0, 2, 6 WEEKS)
     Route: 042
     Dates: start: 20180523
  3. SALOFALK /00747601/ [Concomitant]
     Active Substance: MESALAMINE
     Dosage: 2 G, 1X/DAY
     Route: 048
     Dates: start: 201703
  4. INFLECTRA [INFLIXIMAB] [Concomitant]
     Dosage: 275 MG, CYCLIC (EVERY 8 WEEKS)
     Route: 042
     Dates: start: 20180828
  5. AZATHIOPRINE. [Concomitant]
     Active Substance: AZATHIOPRINE
     Dosage: 125 MG, ONCE A DAY
     Dates: end: 2001
  6. PRISTIQ EXTENDED-RELEASE [Suspect]
     Active Substance: DESVENLAFAXINE SUCCINATE
     Dosage: 100 MG, 1X/DAY
     Route: 048
     Dates: start: 2015
  7. PRISTIQ EXTENDED-RELEASE [Suspect]
     Active Substance: DESVENLAFAXINE SUCCINATE
     Dosage: 50 MG, 1X/DAY
     Route: 048
     Dates: start: 2015
  8. AZATHIOPRINE. [Concomitant]
     Active Substance: AZATHIOPRINE
     Dosage: 100 MG, 1X/DAY
     Route: 048
  9. HUMIRA [Concomitant]
     Active Substance: ADALIMUMAB
     Dosage: 1 DF(INJECTION), WEEKLY
     Dates: start: 20180208, end: 20180322

REACTIONS (5)
  - Musculoskeletal pain [Not Recovered/Not Resolved]
  - Colitis ulcerative [Unknown]
  - Condition aggravated [Unknown]
  - Joint injury [Recovering/Resolving]
  - Weight decreased [Unknown]

NARRATIVE: CASE EVENT DATE: 20180523
